FAERS Safety Report 9587355 (Version 1)
Quarter: 2013Q4

REPORT INFORMATION
  Report Type: Spontaneous
  Country: FR (occurrence: FR)
  Receive Date: 20131003
  Receipt Date: 20131003
  Transmission Date: 20140711
  Serious: Yes (Other)
  Sender: FDA-Public Use
  Company Number: FR-TEVA-434054ISR

PATIENT
  Age: 35 Year
  Sex: Female

DRUGS (1)
  1. LEELOO [Suspect]
     Indication: ORAL CONTRACEPTION

REACTIONS (2)
  - Ectopic pregnancy [Unknown]
  - Pregnancy on oral contraceptive [Unknown]
